FAERS Safety Report 4491952-2 (Version None)
Quarter: 2004Q4

REPORT INFORMATION
  Report Type: 
  Country: None (occurrence: None)
  Receive Date: 20041029
  Receipt Date: 20041029
  Transmission Date: 20050328
  Serious: No
  Sender: FDA-Public Use
  Company Number: None

PATIENT
  Age: 68 Year
  Sex: Male
  Weight: 93.3 kg

DRUGS (10)
  1. INFLIXIMAB 6 MG /KG = 60 ML (MFR CENTACOR) [Suspect]
     Indication: RHEUMATOID ARTHRITIS
     Dosage: 6 MG/KG IV Q 4 WKS
     Route: 042
     Dates: start: 20040712
  2. INFLIXIMAB 6 MG /KG = 60 ML (MFR CENTACOR) [Suspect]
     Indication: RHEUMATOID ARTHRITIS
     Dosage: 6 MG/KG IV Q 4 WKS
     Route: 042
     Dates: start: 20040726
  3. INFLIXIMAB 6 MG /KG = 60 ML (MFR CENTACOR) [Suspect]
     Indication: RHEUMATOID ARTHRITIS
     Dosage: 6 MG/KG IV Q 4 WKS
     Route: 042
     Dates: start: 20040831
  4. INFLIXIMAB 6 MG /KG = 60 ML (MFR CENTACOR) [Suspect]
     Indication: RHEUMATOID ARTHRITIS
     Dosage: 6 MG/KG IV Q 4 WKS
     Route: 042
     Dates: start: 20040930
  5. INFLIXIMAB 6 MG /KG = 60 ML (MFR CENTACOR) [Suspect]
     Indication: RHEUMATOID ARTHRITIS
     Dosage: 6 MG/KG IV Q 4 WKS
     Route: 042
     Dates: start: 20041028
  6. CELEBREX [Concomitant]
  7. PLENDIL [Concomitant]
  8. PREDNISONE [Concomitant]
  9. LASIX [Concomitant]
  10. ASPIRIN [Concomitant]

REACTIONS (7)
  - ASTHENIA [None]
  - BLOOD PRESSURE DECREASED [None]
  - COLD SWEAT [None]
  - INFUSION RELATED REACTION [None]
  - LOSS OF CONSCIOUSNESS [None]
  - TREMOR [None]
  - WHEEZING [None]
